FAERS Safety Report 15657417 (Version 1)
Quarter: 2018Q4

REPORT INFORMATION
  Report Type: Spontaneous
  Country: GB (occurrence: FR)
  Receive Date: 20181126
  Receipt Date: 20181126
  Transmission Date: 20190205
  Serious: Yes (Other)
  Sender: FDA-Public Use
  Company Number: FR-FRESENIUS KABI-FK201811698

PATIENT
  Age: 19 Year
  Sex: Male

DRUGS (11)
  1. PROPOFOL (MANUFACTURER UNKNOWN) [Suspect]
     Active Substance: PROPOFOL
     Indication: SEDATIVE THERAPY
     Route: 041
     Dates: end: 20181012
  2. KETAMINE RENAUDIN [Suspect]
     Active Substance: KETAMINE
     Indication: SEDATIVE THERAPY
     Route: 042
     Dates: start: 20181013, end: 20181013
  3. SUFENTANIL MYLAN [Suspect]
     Active Substance: SUFENTANIL
     Indication: SEDATIVE THERAPY
     Route: 042
     Dates: end: 20181011
  4. TERCIAN [Suspect]
     Active Substance: CYAMEMAZINE
     Indication: AGITATION
     Route: 048
     Dates: start: 20181012, end: 20181015
  5. SERESTA [Suspect]
     Active Substance: OXAZEPAM
     Indication: AGITATION
     Route: 048
     Dates: start: 20181012, end: 20181015
  6. PANTOPRAZOLE SODIUM. [Suspect]
     Active Substance: PANTOPRAZOLE SODIUM
     Indication: PROPHYLAXIS AGAINST GASTROINTESTINAL ULCER
     Route: 042
     Dates: end: 20181016
  7. ORBENINE [Suspect]
     Active Substance: CLOXACILLIN SODIUM
     Indication: LUNG DISORDER
     Route: 042
     Dates: start: 20181009, end: 20181013
  8. MIDAZOLAM [Suspect]
     Active Substance: MIDAZOLAM HYDROCHLORIDE
     Indication: SEDATIVE THERAPY
     Route: 042
     Dates: end: 20181011
  9. PARACETAMOL (MANUFACTURER UNKNOWN) [Suspect]
     Active Substance: ACETAMINOPHEN
     Indication: GAIT DISTURBANCE
     Route: 042
     Dates: start: 20181011, end: 20181015
  10. PIPERACILLINE TAZOBACTAM MYLAN [Suspect]
     Active Substance: PIPERACILLIN SODIUM\TAZOBACTAM SODIUM
     Indication: LUNG DISORDER
     Route: 042
     Dates: start: 20181013, end: 20181016
  11. SUCRALFATE. [Suspect]
     Active Substance: SUCRALFATE
     Indication: PROPHYLAXIS AGAINST GASTROINTESTINAL ULCER
     Route: 048
     Dates: start: 20181013, end: 20181013

REACTIONS (1)
  - Hepatitis [Recovering/Resolving]

NARRATIVE: CASE EVENT DATE: 20181016
